FAERS Safety Report 6935940-2 (Version None)
Quarter: 2010Q3

REPORT INFORMATION
  Report Type: 
  Country: None (occurrence: None)
  Receive Date: 20100816
  Receipt Date: 20100208
  Transmission Date: 20110219
  Serious: Yes (Hospitalization, Other)
  Sender: FDA-Public Use
  Company Number: US-WYE-H13439110

PATIENT
  Age: 61 Year
  Sex: Female
  Weight: 79 kg

DRUGS (5)
  1. TYGACIL [Suspect]
     Indication: OSTEOMYELITIS
     Dosage: 50 MG 1X PER 12 HR INTRAVENOUS
     Route: 042
     Dates: start: 20091214, end: 20100124
  2. XANAX [Concomitant]
  3. PLAVIX [Concomitant]
  4. CELEBREX [Concomitant]
  5. ACETAMINOPHEN [Concomitant]

REACTIONS (1)
  - PANCREATITIS [None]
